FAERS Safety Report 8801290 (Version 1)
Quarter: 2012Q4

REPORT INFORMATION
  Report Type: 
  Country: IL (occurrence: IL)
  Receive Date: 20120921
  Receipt Date: 20120921
  Transmission Date: 20130627
  Serious: Yes (Other)
  Sender: FDA-Public Use
  Company Number: IL-JNJFOC-20120906877

PATIENT

DRUGS (2)
  1. TOPIRAMATE [Suspect]
     Indication: PRODUCT USED FOR UNKNOWN INDICATION
     Route: 064
  2. TOPIRAMATE [Suspect]
     Indication: FOETAL EXPOSURE DURING PREGNANCY
     Route: 064

REACTIONS (4)
  - Foetal distress syndrome [Unknown]
  - Abnormal behaviour [Unknown]
  - Withdrawal syndrome [Unknown]
  - Motor dysfunction [Unknown]
